FAERS Safety Report 23248050 (Version 1)
Quarter: 2023Q4

REPORT INFORMATION
  Report Type: Spontaneous
  Country: US (occurrence: US)
  Receive Date: 20231130
  Receipt Date: 20231130
  Transmission Date: 20240110
  Serious: Yes (Hospitalization)
  Sender: FDA-Public Use
  Company Number: US-ELI_LILLY_AND_COMPANY-US202311013342

PATIENT
  Age: 95 Year
  Sex: Female

DRUGS (2)
  1. INSULIN LISPRO [Suspect]
     Active Substance: INSULIN LISPRO
     Indication: Type 2 diabetes mellitus
     Dosage: 5 U, UNKNOWN
     Route: 058
  2. LANTUS [Concomitant]
     Active Substance: INSULIN GLARGINE
     Indication: Type 2 diabetes mellitus

REACTIONS (7)
  - Colitis [Recovering/Resolving]
  - Pneumonia [Recovering/Resolving]
  - Diverticulitis [Recovering/Resolving]
  - Sepsis [Recovering/Resolving]
  - Blood pressure increased [Unknown]
  - Blood glucose increased [Not Recovered/Not Resolved]
  - Decreased appetite [Recovered/Resolved]

NARRATIVE: CASE EVENT DATE: 20230801
